FAERS Safety Report 17663110 (Version 1)
Quarter: 2020Q2

REPORT INFORMATION
  Report Type: Report from Study
  Country: US (occurrence: US)
  Receive Date: 20200414
  Receipt Date: 20200414
  Transmission Date: 20200713
  Serious: Yes (Death)
  Sender: FDA-Public Use
  Company Number: US-SUN PHARMACEUTICAL INDUSTRIES LTD-2020R1-243205

PATIENT

DRUGS (4)
  1. ETOPOSIDE. [Concomitant]
     Active Substance: ETOPOSIDE
     Indication: BRAIN NEOPLASM
     Dosage: 300 MILLIGRAM/SQ. METER
     Route: 065
  2. CARBOPLATIN. [Suspect]
     Active Substance: CARBOPLATIN
     Indication: BRAIN NEOPLASM
     Dosage: UNK
     Route: 065
  3. METHOTREXATE. [Suspect]
     Active Substance: METHOTREXATE
     Indication: BRAIN NEOPLASM
     Dosage: UNK
     Route: 065
  4. THIOTEPA. [Concomitant]
     Active Substance: THIOTEPA
     Indication: BRAIN NEOPLASM
     Dosage: 300 MILLIGRAM/SQ. METER
     Route: 065

REACTIONS (4)
  - Multiple organ dysfunction syndrome [Fatal]
  - Ileus [Fatal]
  - Haemorrhage intracranial [Fatal]
  - Nephropathy toxic [Fatal]
